FAERS Safety Report 11389948 (Version 1)
Quarter: 2015Q3

REPORT INFORMATION
  Report Type: Spontaneous
  Country: JP (occurrence: JP)
  Receive Date: 20150818
  Receipt Date: 20150818
  Transmission Date: 20151125
  Serious: Yes (Death, Other)
  Sender: FDA-Public Use
  Company Number: PHHY2015JP094796

PATIENT
  Sex: Male

DRUGS (1)
  1. INDOMETHACIN. [Suspect]
     Active Substance: INDOMETHACIN
     Indication: PRODUCT USED FOR UNKNOWN INDICATION
     Dosage: 50 MG, Q8H
     Route: 064

REACTIONS (6)
  - Premature baby [Unknown]
  - Foetal exposure during pregnancy [Unknown]
  - Pulmonary thrombosis [Fatal]
  - Metabolic acidosis [Fatal]
  - Ductus arteriosus premature closure [Unknown]
  - Hypoxia [Fatal]
